FAERS Safety Report 25297063 (Version 1)
Quarter: 2025Q2

REPORT INFORMATION
  Report Type: Spontaneous
  Country: US (occurrence: US)
  Receive Date: 20250511
  Receipt Date: 20250511
  Transmission Date: 20250717
  Serious: No
  Sender: UCB
  Company Number: US-UCBSA-2024032170

PATIENT
  Age: 58 Year
  Sex: Male

DRUGS (1)
  1. CIMZIA [Suspect]
     Active Substance: CERTOLIZUMAB PEGOL
     Indication: Product used for unknown indication
     Route: 058
     Dates: start: 20220802, end: 20221006

REACTIONS (4)
  - Injection site rash [Unknown]
  - Rash [Unknown]
  - Muscle spasms [Unknown]
  - Pustule [Unknown]

NARRATIVE: CASE EVENT DATE: 20220818
